FAERS Safety Report 7666386-X (Version None)
Quarter: 2011Q3

REPORT INFORMATION
  Report Type: 
  Country: None (occurrence: None)
  Receive Date: 20110806
  Receipt Date: 20110317
  Transmission Date: 20111222
  Serious: No
  Sender: FDA-Public Use
  Company Number: US-ABBOTT-11P-163-0712782-00

PATIENT
  Sex: Male
  Weight: 170.25 kg

DRUGS (6)
  1. COUMADIN [Concomitant]
     Indication: ATRIAL FIBRILLATION
     Dosage: 7.5 5 DAYS /10MG 2 DAYS A WEEK
  2. GEMFIBROZIL [Concomitant]
     Indication: PRODUCT USED FOR UNKNOWN INDICATION
  3. METFORMIN HCL [Concomitant]
     Indication: PRODUCT USED FOR UNKNOWN INDICATION
     Dosage: 1000 IN AM, 1 AT NOON 1 AT BEDTIME
  4. NIASPAN [Suspect]
     Indication: BLOOD CHOLESTEROL INCREASED
  5. DIGOXIN [Concomitant]
     Indication: ATRIAL FIBRILLATION
  6. CORGARD [Concomitant]
     Indication: PRODUCT USED FOR UNKNOWN INDICATION

REACTIONS (2)
  - BLOOD GLUCOSE INCREASED [None]
  - PROTHROMBIN TIME PROLONGED [None]
